FAERS Safety Report 25145392 (Version 4)
Quarter: 2025Q2

REPORT INFORMATION
  Report Type: Spontaneous
  Country: US (occurrence: US)
  Receive Date: 20250401
  Receipt Date: 20250606
  Transmission Date: 20250716
  Serious: No
  Sender: SANOFI AVENTIS
  Company Number: US-SANOFI-02465649

PATIENT
  Age: 41 Year
  Sex: Female
  Weight: 97.36 kg

DRUGS (10)
  1. DUPIXENT [Suspect]
     Active Substance: DUPILUMAB
     Indication: Nasal polyps
     Dosage: 300 MG, QOW
     Route: 058
     Dates: start: 202411
  2. WEGOVY [Concomitant]
     Active Substance: SEMAGLUTIDE
     Dates: start: 202410
  3. SERTRALINE [Concomitant]
     Active Substance: SERTRALINE HYDROCHLORIDE
  4. LAMOTRIGINE [Concomitant]
     Active Substance: LAMOTRIGINE
  5. CLONAZEPAM [Concomitant]
     Active Substance: CLONAZEPAM
  6. FLUTICASONE PROPIONATE\SALMETEROL XINAFOATE [Concomitant]
     Active Substance: FLUTICASONE PROPIONATE\SALMETEROL XINAFOATE
  7. VALACYCLOVIR [Concomitant]
     Active Substance: VALACYCLOVIR HYDROCHLORIDE
  8. PRAZOSIN [Concomitant]
     Active Substance: PRAZOSIN
  9. AZELASTINE [Concomitant]
     Active Substance: AZELASTINE
  10. RIZATRIPTAN [Concomitant]
     Active Substance: RIZATRIPTAN

REACTIONS (1)
  - Injection site bruising [Unknown]

NARRATIVE: CASE EVENT DATE: 20250326
